FAERS Safety Report 4756024-8 (Version None)
Quarter: 2005Q3

REPORT INFORMATION
  Report Type: 
  Country: None (occurrence: None)
  Receive Date: 20050825
  Receipt Date: 20050506
  Transmission Date: 20060218
  Serious: Yes (Disabling)
  Sender: FDA-Public Use
  Company Number: WAES 0505USA00866

PATIENT
  Age: 48 Year
  Sex: Female
  Weight: 67.1324 kg

DRUGS (7)
  1. VYTORIN [Suspect]
     Indication: HYPERCHOLESTEROLAEMIA
     Dosage: 10-40 MG/DAILY/PO
     Route: 048
     Dates: start: 20050401, end: 20050503
  2. ASTELIN [Concomitant]
  3. ELAVIL [Concomitant]
  4. GLUCOPHAGE [Concomitant]
  5. NEXIUM [Concomitant]
  6. TRICOR [Concomitant]
  7. FISH OIL (UNSPECIFIED) [Concomitant]

REACTIONS (1)
  - RHABDOMYOLYSIS [None]
